FAERS Safety Report 16405680 (Version 3)
Quarter: 2020Q1

REPORT INFORMATION
  Report Type: Spontaneous
  Country: US (occurrence: US)
  Receive Date: 20190607
  Receipt Date: 20200305
  Transmission Date: 20200409
  Serious: Yes (Hospitalization, Disabling)
  Sender: FDA-Public Use
  Company Number: US-ELI_LILLY_AND_COMPANY-US201905014778

PATIENT
  Sex: Male

DRUGS (2)
  1. HUMALOG MIX50/50 [Suspect]
     Active Substance: INSULIN LISPRO
     Indication: TYPE 2 DIABETES MELLITUS
     Dosage: 50 U, PRN (TWICE A DAY)
     Route: 058
     Dates: start: 2002
  2. HUMALOG MIX50/50 [Suspect]
     Active Substance: INSULIN LISPRO
     Dosage: 50 U, PRN (TWICE A DAY)
     Route: 058

REACTIONS (7)
  - Multiple sclerosis [Unknown]
  - Fall [Unknown]
  - Intentional product misuse [Unknown]
  - Coronary artery occlusion [Unknown]
  - Spinal column injury [Unknown]
  - Hypertension [Unknown]
  - Asthenia [Unknown]

NARRATIVE: CASE EVENT DATE: 2005
